FAERS Safety Report 12304944 (Version 5)
Quarter: 2016Q3

REPORT INFORMATION
  Report Type: Spontaneous
  Country: US (occurrence: US)
  Receive Date: 20160426
  Receipt Date: 20160808
  Transmission Date: 20161109
  Serious: Yes (Other)
  Sender: FDA-Public Use
  Company Number: US-PFIZER INC-2016197235

PATIENT
  Age: 74 Year
  Sex: Female
  Weight: 58.5 kg

DRUGS (3)
  1. EXEMESTANE. [Suspect]
     Active Substance: EXEMESTANE
     Indication: BREAST CANCER METASTATIC
     Dosage: UNK
  2. IBRANCE [Suspect]
     Active Substance: PALBOCICLIB
     Dosage: 100 MG, CYCLIC (DAILY FOR DAYS 1-21 OF EVERY 28 DAYS)
     Route: 048
  3. IBRANCE [Suspect]
     Active Substance: PALBOCICLIB
     Indication: BREAST CANCER METASTATIC
     Dosage: 125 MG, CYCLIC (DAILYS FOR DAY 1-21 OF EVERY 28 DAYS)
     Route: 048
     Dates: start: 20160406

REACTIONS (4)
  - White blood cell count decreased [Recovered/Resolved]
  - Product use issue [Unknown]
  - Anaemia [Unknown]
  - Alopecia [Unknown]
